FAERS Safety Report 12731757 (Version 1)
Quarter: 2016Q3

REPORT INFORMATION
  Report Type: Spontaneous
  Country: US (occurrence: US)
  Receive Date: 20160912
  Receipt Date: 20160912
  Transmission Date: 20161109
  Serious: Yes (Death)
  Sender: FDA-Public Use
  Company Number: None

PATIENT
  Age: 96 Year
  Weight: 89 kg

DRUGS (9)
  1. TORSEMIDE. [Concomitant]
     Active Substance: TORSEMIDE
  2. ISOSORBIDE. [Concomitant]
     Active Substance: ISOSORBIDE
  3. ALTEPLASE [Suspect]
     Active Substance: ALTEPLASE
     Indication: CEREBROVASCULAR ACCIDENT
     Route: 040
     Dates: start: 20160118
  4. ALLOPURINOL. [Concomitant]
     Active Substance: ALLOPURINOL
  5. PROTONIX [Concomitant]
     Active Substance: PANTOPRAZOLE SODIUM
  6. WARFARIN [Concomitant]
     Active Substance: WARFARIN
  7. SYNTHROID [Concomitant]
     Active Substance: LEVOTHYROXINE SODIUM
  8. DIGOXIN. [Concomitant]
     Active Substance: DIGOXIN
  9. DILTIAZEM. [Concomitant]
     Active Substance: DILTIAZEM

REACTIONS (1)
  - Cerebral haemorrhage [None]
